FAERS Safety Report 6761660-3 (Version None)
Quarter: 2010Q2

REPORT INFORMATION
  Report Type: 
  Country: None (occurrence: None)
  Receive Date: 20100609
  Receipt Date: 20100601
  Transmission Date: 20101027
  Serious: No
  Sender: FDA-Public Use
  Company Number: US-BIOGENIDEC-2010BI018680

PATIENT
  Age: 52 Year
  Sex: Female

DRUGS (2)
  1. TYSABRI [Suspect]
     Indication: MULTIPLE SCLEROSIS
     Route: 042
     Dates: start: 20080501, end: 20090901
  2. TYSABRI [Suspect]
     Route: 042
     Dates: start: 20090901

REACTIONS (5)
  - ERYTHEMA [None]
  - EYE PRURITUS [None]
  - HYPOAESTHESIA FACIAL [None]
  - LIP SWELLING [None]
  - PHARYNGEAL HYPOAESTHESIA [None]
